FAERS Safety Report 15280230 (Version 1)
Quarter: 2018Q3

REPORT INFORMATION
  Report Type: Spontaneous
  Country: IT (occurrence: IT)
  Receive Date: 20180815
  Receipt Date: 20180815
  Transmission Date: 20181010
  Serious: Yes (Hospitalization, Other)
  Sender: FDA-Public Use
  Company Number: IT-VIIV HEALTHCARE LIMITED-IT2018GSK146586

PATIENT
  Age: 48 Year
  Sex: Male

DRUGS (1)
  1. ABACAVIR SULPHATE [Suspect]
     Active Substance: ABACAVIR
     Indication: PRODUCT USED FOR UNKNOWN INDICATION
     Dosage: UNK

REACTIONS (4)
  - Anaemia [Unknown]
  - Fungal infection [Unknown]
  - Kaposi^s sarcoma [Unknown]
  - Rib fracture [Unknown]

NARRATIVE: CASE EVENT DATE: 20011123
